FAERS Safety Report 11254576 (Version 1)
Quarter: 2015Q3

REPORT INFORMATION
  Report Type: Other
  Country: TW (occurrence: TW)
  Receive Date: 20150709
  Receipt Date: 20150709
  Transmission Date: 20151125
  Serious: Yes (Other)
  Sender: FDA-Public Use
  Company Number: TW-GUERBET LLC-1040417

PATIENT
  Age: 51 Year
  Sex: Male

DRUGS (3)
  1. LIPIODOL [Suspect]
     Active Substance: ETHIODIZED OIL
     Indication: THERAPEUTIC EMBOLISATION
     Route: 013
  2. ADRIAMYCIN [Concomitant]
     Active Substance: DOXORUBICIN HYDROCHLORIDE
     Route: 013
  3. GELFOAM [Concomitant]
     Active Substance: GELATIN\THROMBIN HUMAN

REACTIONS (3)
  - Cerebral artery embolism [Unknown]
  - Pneumonitis [Unknown]
  - Overdose [Unknown]
